FAERS Safety Report 5667887-6 (Version None)
Quarter: 2008Q1

REPORT INFORMATION
  Report Type: 
  Country: None (occurrence: None)
  Receive Date: 20080315
  Receipt Date: 20080204
  Transmission Date: 20080703
  Serious: No
  Sender: FDA-Public Use
  Company Number: US-ABBOTT-08P-163-0437267-00

PATIENT
  Sex: Female
  Weight: 45.854 kg

DRUGS (4)
  1. HUMIRA [Suspect]
     Indication: CROHN'S DISEASE
     Route: 058
     Dates: start: 20071101, end: 20071101
  2. HUMIRA [Suspect]
     Route: 058
     Dates: start: 20071123, end: 20071123
  3. HUMIRA [Suspect]
     Route: 058
     Dates: end: 20071201
  4. HUMIRA [Suspect]
     Route: 058
     Dates: end: 20080101

REACTIONS (10)
  - DYSPNOEA [None]
  - FATIGUE [None]
  - HEADACHE [None]
  - HYPERSENSITIVITY [None]
  - NASAL CONGESTION [None]
  - NAUSEA [None]
  - PAIN [None]
  - PHARYNGOLARYNGEAL PAIN [None]
  - SINUSITIS [None]
  - STAPHYLOCOCCAL INFECTION [None]
